FAERS Safety Report 6921557-2 (Version None)
Quarter: 2010Q3

REPORT INFORMATION
  Report Type: 
  Country: None (occurrence: None)
  Receive Date: 20100812
  Receipt Date: 20100810
  Transmission Date: 20110219
  Serious: Yes (Other)
  Sender: FDA-Public Use
  Company Number: PHHO2010DE11672

PATIENT
  Sex: Male
  Weight: 50 kg

DRUGS (2)
  1. AFINITOR [Suspect]
     Indication: METASTATIC RENAL CELL CARCINOMA
     Dosage: UNK
     Route: 048
     Dates: start: 20100605, end: 20100628
  2. AVASTIN [Suspect]
     Indication: METASTATIC RENAL CELL CARCINOMA
     Dosage: UNK
     Dates: start: 20100605, end: 20100628

REACTIONS (4)
  - BENIGN PROSTATIC HYPERPLASIA [None]
  - BLADDER CATHETERISATION [None]
  - URINARY RETENTION [None]
  - URINARY TRACT INFECTION [None]
